FAERS Safety Report 14122024 (Version 1)
Quarter: 2017Q4

REPORT INFORMATION
  Report Type: Spontaneous
  Country: US (occurrence: US)
  Receive Date: 20171024
  Receipt Date: 20171024
  Transmission Date: 20180321
  Serious: No
  Sender: FDA-Public Use
  Company Number: US-SA-2017SA063556

PATIENT
  Sex: Female

DRUGS (2)
  1. HUMIRA [Suspect]
     Active Substance: ADALIMUMAB
     Indication: RHEUMATOID ARTHRITIS
     Route: 058
  2. ARAVA [Suspect]
     Active Substance: LEFLUNOMIDE
     Route: 048

REACTIONS (6)
  - Feeling hot [Unknown]
  - Pruritus generalised [Unknown]
  - Finger deformity [Not Recovered/Not Resolved]
  - Urticaria [Not Recovered/Not Resolved]
  - Generalised erythema [Unknown]
  - Scab [Not Recovered/Not Resolved]
